FAERS Safety Report 8687788 (Version 4)
Quarter: 2012Q4

REPORT INFORMATION
  Report Type: Report from Study
  Country: BE (occurrence: BE)
  Receive Date: 20120727
  Receipt Date: 20120926
  Transmission Date: 20130627
  Serious: Yes (Life-Threatening, Hospitalization, Other)
  Sender: FDA-Public Use
  Company Number: BE-GENZYME-CLOF-1002220

PATIENT
  Age: 61 Year
  Sex: Male
  Weight: 81 kg

DRUGS (2)
  1. EVOLTRA [Suspect]
     Indication: ACUTE LYMPHOCYTIC LEUKAEMIA
     Dosage: 60 mg, qd
     Route: 042
     Dates: start: 20120711, end: 20120714
  2. PREDNISOLONE [Suspect]
     Indication: ACUTE LYMPHOCYTIC LEUKAEMIA
     Dosage: 120 mg, qd
     Route: 048
     Dates: start: 20120711, end: 20120714

REACTIONS (3)
  - Splenic rupture [Recovered/Resolved]
  - Shock haemorrhagic [Recovered/Resolved]
  - Splenic lesion [Recovered/Resolved]
